FAERS Safety Report 7741271-3 (Version None)
Quarter: 2011Q3

REPORT INFORMATION
  Report Type: 
  Country: None (occurrence: None)
  Receive Date: 20110909
  Receipt Date: 20110906
  Transmission Date: 20111222
  Serious: Yes (Death, Hospitalization)
  Sender: FDA-Public Use
  Company Number: US-US-EMD SERONO, INC.-7042416

PATIENT
  Sex: Male

DRUGS (3)
  1. BACLOFEN [Concomitant]
     Indication: MUSCLE SPASTICITY
  2. REBIF [Suspect]
     Indication: MULTIPLE SCLEROSIS
     Route: 058
     Dates: start: 20070912
  3. VENOFLEX [Concomitant]
     Indication: MUSCLE SPASTICITY

REACTIONS (7)
  - THERMAL BURN [None]
  - CSF PROTEIN INCREASED [None]
  - CEREBROVASCULAR ACCIDENT [None]
  - ABDOMINAL DISCOMFORT [None]
  - ELECTROENCEPHALOGRAM ABNORMAL [None]
  - BLOOD GLUCOSE INCREASED [None]
  - INFLUENZA LIKE ILLNESS [None]
